FAERS Safety Report 18691061 (Version 1)
Quarter: 2021Q1

REPORT INFORMATION
  Report Type: Spontaneous
  Country: CN (occurrence: CN)
  Receive Date: 20210101
  Receipt Date: 20210101
  Transmission Date: 20210419
  Serious: Yes (Hospitalization)
  Sender: FDA-Public Use
  Company Number: CN-BAXTER-2020BAX026742

PATIENT
  Age: 84 Year
  Sex: Female
  Weight: 47 kg

DRUGS (4)
  1. 0.9% SODIUM CHLORIDE INJECTION [Suspect]
     Active Substance: SODIUM CHLORIDE
     Indication: MEDICATION DILUTION
     Dosage: SODIUM CHLORIDE + ENDOXAN (0.7 G), SINGLE DOSE
     Route: 041
     Dates: start: 20201125, end: 20201125
  2. DOXORUBICIN HYDROCHLORIDE LIPOSOMAL [Suspect]
     Active Substance: DOXORUBICIN HYDROCHLORIDE
     Indication: LYMPHOMA
     Dosage: DOXORUBICIN HYDROCHLORIDE LIPOSOMAL + 5% GLUCOSE (250 ML),SINGLE DOSE
     Route: 041
     Dates: start: 20201125, end: 20201125
  3. ENDOXAN [Suspect]
     Active Substance: CYCLOPHOSPHAMIDE
     Indication: LYMPHOMA
     Dosage: ENDOXAN + SODIUM CHLORIDE (100 ML), SINGLE DOSE
     Route: 041
     Dates: start: 20201125, end: 20201125
  4. 5% GLUCOSE  INJECTION [Suspect]
     Active Substance: DEXTROSE
     Indication: MEDICATION DILUTION
     Dosage: 5% GLUCOSE + DOXORUBICIN HYDROCHLORIDE LIPOSOMAL (35 MG), SINGLE DOSE
     Route: 041
     Dates: start: 20201125, end: 20201125

REACTIONS (1)
  - Platelet count decreased [Recovered/Resolved]

NARRATIVE: CASE EVENT DATE: 20201203
